FAERS Safety Report 7176007-0 (Version None)
Quarter: 2010Q4

REPORT INFORMATION
  Report Type: 
  Country: None (occurrence: None)
  Receive Date: 20101220
  Receipt Date: 20101208
  Transmission Date: 20110411
  Serious: No
  Sender: FDA-Public Use
  Company Number: US-BIOGENIDEC-2010BI028596

PATIENT
  Age: 47 Year
  Sex: Male

DRUGS (4)
  1. TYSABRI [Suspect]
     Indication: RELAPSING-REMITTING MULTIPLE SCLEROSIS
     Route: 042
     Dates: start: 20070601, end: 20080702
  2. TYSABRI [Suspect]
     Route: 042
     Dates: start: 20081126, end: 20081229
  3. TYSABRI [Suspect]
     Route: 042
     Dates: start: 20090126, end: 20100322
  4. TYSABRI [Suspect]
     Route: 042
     Dates: start: 20100720

REACTIONS (3)
  - BALANCE DISORDER [None]
  - FATIGUE [None]
  - GAIT DISTURBANCE [None]
